FAERS Safety Report 12536950 (Version 2)
Quarter: 2016Q3

REPORT INFORMATION
  Report Type: Spontaneous
  Country: GR (occurrence: GR)
  Receive Date: 20160707
  Receipt Date: 20160906
  Transmission Date: 20161109
  Serious: Yes (Other)
  Sender: FDA-Public Use
  Company Number: GR-009507513-1607GRC001081

PATIENT
  Age: 82 Year
  Sex: Female

DRUGS (8)
  1. SEROPRAM [Concomitant]
     Active Substance: CITALOPRAM HYDROBROMIDE
     Indication: NEURALGIA
     Dosage: UNK
     Dates: end: 20160627
  2. REMERON [Suspect]
     Active Substance: MIRTAZAPINE
     Dosage: 30 MG (1 TABLET) DAILY
     Route: 048
     Dates: start: 20160628, end: 2016
  3. ANGORON [Concomitant]
     Active Substance: AMIODARONE HYDROCHLORIDE
  4. TEGRETOL [Concomitant]
     Active Substance: CARBAMAZEPINE
  5. LASIX [Concomitant]
     Active Substance: FUROSEMIDE
  6. LOPRESSOR [Concomitant]
     Active Substance: METOPROLOL TARTRATE
     Dosage: 1/2 TABLET
  7. SALOSPIR [Concomitant]
     Active Substance: ASPIRIN
  8. PANTOPRAZOLE [Concomitant]
     Active Substance: PANTOPRAZOLE SODIUM

REACTIONS (1)
  - Ventricular tachycardia [Unknown]

NARRATIVE: CASE EVENT DATE: 20160629
